FAERS Safety Report 11751856 (Version 1)
Quarter: 2015Q4

REPORT INFORMATION
  Report Type: Spontaneous
  Country: US (occurrence: US)
  Receive Date: 20151118
  Receipt Date: 20151118
  Transmission Date: 20160304
  Serious: Yes (Hospitalization)
  Sender: FDA-Public Use
  Company Number: US-DSJP-DSU-2015-118403

PATIENT

DRUGS (1)
  1. BENICAR HCT [Suspect]
     Active Substance: HYDROCHLOROTHIAZIDE\OLMESARTAN MEDOXOMIL
     Indication: HYPERTENSION
     Dosage: 40/25 MG
     Dates: start: 2003, end: 2014

REACTIONS (7)
  - Malabsorption [Unknown]
  - Haemorrhoids [Unknown]
  - Gallbladder disorder [Unknown]
  - Adenoma benign [Unknown]
  - Dizziness [Unknown]
  - Large intestine polyp [Recovered/Resolved]
  - Gastritis [Unknown]

NARRATIVE: CASE EVENT DATE: 200410
